FAERS Safety Report 7307339-0 (Version None)
Quarter: 2011Q1

REPORT INFORMATION
  Report Type: 
  Country: None (occurrence: None)
  Receive Date: 20110223
  Receipt Date: 20110216
  Transmission Date: 20110831
  Serious: Yes (Other)
  Sender: FDA-Public Use
  Company Number: FR-PFIZER INC-2011034587

PATIENT
  Age: 75 Year
  Sex: Male

DRUGS (3)
  1. TOPALGIC [Suspect]
     Indication: NEURALGIA
     Dosage: UNK
  2. LYRICA [Suspect]
     Indication: NEURALGIA
     Dosage: 25 MG, 2X/DAY
     Route: 048
     Dates: start: 20090101
  3. LYRICA [Suspect]
     Dosage: 75 MG, 2X/DAY
     Route: 048

REACTIONS (4)
  - MYOCLONUS [None]
  - BALANCE DISORDER [None]
  - FALL [None]
  - TOXIC ENCEPHALOPATHY [None]
